FAERS Safety Report 10231403 (Version 1)
Quarter: 2014Q2

REPORT INFORMATION
  Report Type: Spontaneous
  Country: CH (occurrence: CH)
  Receive Date: 20140611
  Receipt Date: 20140611
  Transmission Date: 20141212
  Serious: Yes (Hospitalization)
  Sender: FDA-Public Use
  Company Number: CH-ASTRAZENECA-2014SE39820

PATIENT
  Age: 57 Year
  Sex: Female

DRUGS (6)
  1. NEXIUM [Suspect]
     Route: 048
     Dates: start: 20140225
  2. BELOC ZOK [Suspect]
     Indication: ATRIAL FIBRILLATION
     Route: 048
     Dates: start: 20140226
  3. BELOC ZOK [Suspect]
     Indication: ATRIAL FIBRILLATION
     Dosage: UP TO 75-25-75 MG, THAT IS 175 MG/DAY
     Route: 048
  4. BELOC ZOK [Suspect]
     Indication: ATRIAL FIBRILLATION
     Route: 048
  5. ATORVASTATINE [Suspect]
     Indication: CEREBROVASCULAR ACCIDENT
     Route: 048
     Dates: start: 20140225, end: 20140430
  6. ELIQUIS [Suspect]
     Indication: ATRIAL FIBRILLATION
     Route: 048
     Dates: start: 20140225, end: 20140427

REACTIONS (10)
  - Cholelithiasis [Unknown]
  - Cholecystitis [Unknown]
  - Post procedural bile leak [Unknown]
  - Limb injury [Unknown]
  - Hepatitis [Recovering/Resolving]
  - Chest pain [Unknown]
  - Dyspnoea [Unknown]
  - Anxiety [Unknown]
  - Abdominal pain upper [Unknown]
  - Incorrect dose administered [Unknown]
